FAERS Safety Report 14517491 (Version 1)
Quarter: 2018Q1

REPORT INFORMATION
  Report Type: Spontaneous
  Country: CN (occurrence: CN)
  Receive Date: 20180212
  Receipt Date: 20180212
  Transmission Date: 20180509
  Serious: Yes (Death, Other)
  Sender: FDA-Public Use
  Company Number: CN-009507513-1802CHN002350

PATIENT
  Age: 47 Year
  Sex: Male

DRUGS (1)
  1. PEMBROLIZUMAB. [Suspect]
     Active Substance: PEMBROLIZUMAB
     Indication: NATURAL KILLER-CELL LYMPHOBLASTIC LYMPHOMA
     Dosage: 100 MG, Q3W

REACTIONS (5)
  - Histiocytosis haematophagic [Not Recovered/Not Resolved]
  - Malignant neoplasm progression [Fatal]
  - Immune-mediated hepatitis [Unknown]
  - Diarrhoea [Unknown]
  - Off label use [Unknown]
